FAERS Safety Report 20994833 (Version 3)
Quarter: 2022Q3

REPORT INFORMATION
  Report Type: Spontaneous
  Country: ES (occurrence: ES)
  Receive Date: 20220622
  Receipt Date: 20220912
  Transmission Date: 20221026
  Serious: Yes (Hospitalization, Other)
  Sender: FDA-Public Use
  Company Number: ES-SA-SAC20220620001797

PATIENT
  Age: 22 Year
  Sex: Female

DRUGS (4)
  1. ALEMTUZUMAB [Suspect]
     Active Substance: ALEMTUZUMAB
     Indication: Relapsing-remitting multiple sclerosis
     Dosage: UNK
     Dates: start: 20200709, end: 20200713
  2. ALEMTUZUMAB [Suspect]
     Active Substance: ALEMTUZUMAB
     Dosage: UNK
     Dates: start: 20210915, end: 20210917
  3. REBIF [Concomitant]
     Active Substance: INTERFERON BETA-1A
     Dosage: UNK
     Dates: start: 201509, end: 201609
  4. TECFIDERA [Concomitant]
     Active Substance: DIMETHYL FUMARATE
     Dates: start: 20161016, end: 20200601

REACTIONS (7)
  - Platelet count decreased [Unknown]
  - Petechiae [Unknown]
  - Condition aggravated [Unknown]
  - Epistaxis [Unknown]
  - Gingival bleeding [Unknown]
  - Basedow^s disease [Unknown]
  - Off label use [Unknown]

NARRATIVE: CASE EVENT DATE: 20210915
